FAERS Safety Report 15717762 (Version 2)
Quarter: 2019Q1

REPORT INFORMATION
  Report Type: Spontaneous
  Country: US (occurrence: US)
  Receive Date: 20181213
  Receipt Date: 20190201
  Transmission Date: 20190417
  Serious: Yes (Hospitalization)
  Sender: FDA-Public Use
  Company Number: US-DRREDDYS-USA/USA/18/0106106

PATIENT
  Age: 55 Year
  Sex: Male

DRUGS (1)
  1. PANTOPRAZOLE SODIUM DR TABLETS 20MG AND  40MG [Suspect]
     Active Substance: PANTOPRAZOLE SODIUM
     Indication: GASTROOESOPHAGEAL REFLUX DISEASE

REACTIONS (1)
  - Pancreatitis relapsing [Recovered/Resolved]
